FAERS Safety Report 8092464-X (Version None)
Quarter: 2012Q1

REPORT INFORMATION
  Report Type: 
  Country: None (occurrence: None)
  Receive Date: 20120128
  Receipt Date: 20110728
  Transmission Date: 20120608
  Serious: No
  Sender: FDA-Public Use
  Company Number: US-ABBOTT-11P-163-0842306-00

PATIENT
  Sex: Male

DRUGS (1)
  1. HUMIRA [Suspect]
     Indication: PSORIASIS
     Route: 058
     Dates: start: 20110127

REACTIONS (6)
  - INFLAMMATION [None]
  - STAPHYLOCOCCAL INFECTION [None]
  - MUSCULOSKELETAL PAIN [None]
  - BACK PAIN [None]
  - ACNE [None]
  - NON-CARDIAC CHEST PAIN [None]
